FAERS Safety Report 7562768-5 (Version None)
Quarter: 2011Q2

REPORT INFORMATION
  Report Type: 
  Country: None (occurrence: None)
  Receive Date: 20110622
  Receipt Date: 20110608
  Transmission Date: 20111010
  Serious: Yes (Death, Hospitalization)
  Sender: FDA-Public Use
  Company Number: US-MYLANLABS-2011S1012030

PATIENT
  Age: 63 Year
  Sex: Male

DRUGS (18)
  1. ACYCLOVIR [Suspect]
     Indication: ANTIBIOTIC PROPHYLAXIS
     Route: 065
  2. CYCLOPHOSPHAMIDE [Suspect]
     Indication: EPSTEIN-BARR VIRUS ASSOCIATED LYMPHOPROLIFERATIVE DISORDER
     Dosage: 1 COURSE
     Route: 065
  3. DOXORUBICIN HCL [Suspect]
     Indication: EPSTEIN-BARR VIRUS ASSOCIATED LYMPHOPROLIFERATIVE DISORDER
     Dosage: 1 COURSE
     Route: 065
  4. TACROLIMUS [Suspect]
     Indication: GRAFT VERSUS HOST DISEASE
     Dosage: DRIP, TITRATED BY LEVELS
     Route: 065
  5. CAMPATH [Suspect]
     Dosage: 30 MG/DAY 3 TIMES A WEEK FOR 6 WEEKS
     Route: 065
  6. CAMPATH [Suspect]
     Dosage: 10 MG/DAY 3 TIMES A WEEK FOR 3 WEEKS
     Route: 065
  7. RITUXIMAB [Suspect]
     Route: 065
  8. CAMPATH [Suspect]
     Indication: GRAFT VERSUS HOST DISEASE
     Dosage: 3 MG/DAY STARTING DOSE
     Route: 065
  9. PENTAMIDINE ISETHIONATE [Concomitant]
     Indication: ANTIBIOTIC PROPHYLAXIS
     Route: 055
  10. ETOPOSIDE [Suspect]
     Indication: EPSTEIN-BARR VIRUS ASSOCIATED LYMPHOPROLIFERATIVE DISORDER
     Dosage: 1 COURSE
     Route: 065
  11. VINCRISTINE [Suspect]
     Indication: EPSTEIN-BARR VIRUS ASSOCIATED LYMPHOPROLIFERATIVE DISORDER
     Dosage: 1 COURSE
     Route: 065
  12. MYCOPHENOLATE MEFETIL [Suspect]
     Indication: GRAFT VERSUS HOST DISEASE
     Route: 048
  13. RITUXIMAB [Suspect]
     Indication: EPSTEIN-BARR VIRUS ASSOCIATED LYMPHOPROLIFERATIVE DISORDER
     Dosage: 1 COURSE
     Route: 065
  14. RITUXIMAB [Suspect]
     Route: 065
  15. METHYLPREDNISOLONE [Suspect]
     Indication: GRAFT VERSUS HOST DISEASE
     Route: 042
  16. RITUXIMAB [Suspect]
     Indication: GRAFT VERSUS HOST DISEASE
     Dosage: 1 COURSE
     Route: 065
  17. DACLIZUMAB [Suspect]
     Indication: GRAFT VERSUS HOST DISEASE
     Dosage: 1 MG/KG/DAY ON DAYS 1, 4, 8, 15, 22
     Route: 065
  18. PREDNISONE [Suspect]
     Indication: EPSTEIN-BARR VIRUS ASSOCIATED LYMPHOPROLIFERATIVE DISORDER
     Dosage: 1 COURSE
     Route: 065

REACTIONS (2)
  - ACANTHAMOEBA INFECTION [None]
  - LEUKOPENIA [None]
